FAERS Safety Report 6801966-2 (Version None)
Quarter: 2010Q2

REPORT INFORMATION
  Report Type: 
  Country: None (occurrence: None)
  Receive Date: 20100629
  Receipt Date: 20100621
  Transmission Date: 20101027
  Serious: Yes (Hospitalization, Other)
  Sender: FDA-Public Use
  Company Number: US-CELGENEUS-163-21880-10060244

PATIENT
  Sex: Male

DRUGS (3)
  1. REVLIMID [Suspect]
     Indication: MULTIPLE MYELOMA
     Route: 048
     Dates: start: 20090218, end: 20100322
  2. FOLFOX [Suspect]
     Indication: COLON CANCER
     Route: 065
     Dates: start: 20100101
  3. FOLFOX [Suspect]

REACTIONS (1)
  - COLON CANCER METASTATIC [None]
